APPROVED DRUG PRODUCT: RUFINAMIDE
Active Ingredient: RUFINAMIDE
Strength: 400MG
Dosage Form/Route: TABLET;ORAL
Application: A205075 | Product #002 | TE Code: AB
Applicant: GLENMARK PHARMACEUTICALS LTD
Approved: May 16, 2016 | RLD: No | RS: No | Type: RX